FAERS Safety Report 22312062 (Version 1)
Quarter: 2023Q2

REPORT INFORMATION
  Report Type: Spontaneous
  Country: MX (occurrence: MX)
  Receive Date: 20230512
  Receipt Date: 20230512
  Transmission Date: 20230722
  Serious: Yes (Hospitalization, Other)
  Sender: FDA-Public Use
  Company Number: MX-BoehringerIngelheim-2023-BI-236256

PATIENT
  Sex: Female

DRUGS (2)
  1. EMPAGLIFLOZIN\METFORMIN HYDROCHLORIDE [Suspect]
     Active Substance: EMPAGLIFLOZIN\METFORMIN HYDROCHLORIDE
     Indication: Blood glucose abnormal
     Dates: start: 2015
  2. TRULICITY [Concomitant]
     Active Substance: DULAGLUTIDE
     Indication: Blood glucose increased
     Dosage: 1.5
     Dates: start: 2020

REACTIONS (4)
  - Acute myocardial infarction [Unknown]
  - Metabolic disorder [Unknown]
  - Blood glucose increased [Unknown]
  - Cardiac disorder [Unknown]

NARRATIVE: CASE EVENT DATE: 20150101
